FAERS Safety Report 5268813-4 (Version None)
Quarter: 2007Q1

REPORT INFORMATION
  Report Type: 
  Country: None (occurrence: None)
  Receive Date: 20061213
  Receipt Date: 20051117
  Transmission Date: 20070707
  Serious: No
  Sender: FDA-Public Use
  Company Number: 2005UW17498

PATIENT
  Age: 70 Year
  Sex: Female
  Weight: 83.914 kg

DRUGS (2)
  1. TAMOXIFEN CITRATE [Suspect]
     Indication: BREAST CANCER
  2. BLOOD PRESSURE MEDICATION [Concomitant]

REACTIONS (2)
  - CATARACT [None]
  - WEIGHT INCREASED [None]
